FAERS Safety Report 4537198-0 (Version None)
Quarter: 2004Q4

REPORT INFORMATION
  Report Type: 
  Country: None (occurrence: None)
  Receive Date: 20041223
  Receipt Date: 20041124
  Transmission Date: 20050328
  Serious: Yes (Other)
  Sender: FDA-Public Use
  Company Number: PHNU2004DE03999

PATIENT
  Age: 48 Year
  Sex: Male
  Weight: 90 kg

DRUGS (5)
  1. MYFORTIC [Suspect]
     Indication: RENAL TRANSPLANT
     Dosage: 1440MG/DAY
     Route: 048
     Dates: start: 20040814
  2. CYCLOSPORINE [Suspect]
     Indication: RENAL TRANSPLANT
     Route: 065
  3. PREDNISOLONE [Suspect]
  4. AZATHIOPRINE [Suspect]
     Route: 065
  5. CELLCEPT [Suspect]
     Indication: RENAL TRANSPLANT
     Dates: start: 20040801, end: 20040813

REACTIONS (8)
  - BLOOD CREATININE INCREASED [None]
  - BLOOD PRESSURE INCREASED [None]
  - BLOOD UREA INCREASED [None]
  - CREATININE URINE INCREASED [None]
  - DIARRHOEA [None]
  - GASTROINTESTINAL DISORDER [None]
  - TRANSPLANT FAILURE [None]
  - WEIGHT DECREASED [None]
